FAERS Safety Report 19300487 (Version 1)
Quarter: 2021Q2

REPORT INFORMATION
  Report Type: Spontaneous
  Country: US (occurrence: US)
  Receive Date: 20210525
  Receipt Date: 20210525
  Transmission Date: 20210717
  Serious: Yes (Hospitalization)
  Sender: FDA-Public Use
  Company Number: None

PATIENT
  Age: 41 Year
  Sex: Female
  Weight: 148.4 kg

DRUGS (10)
  1. CYTARABINE. [Suspect]
     Active Substance: CYTARABINE
     Dates: end: 20150703
  2. ONCASPAR [Suspect]
     Active Substance: PEGASPARGASE
     Dates: end: 20150215
  3. CYCLOPHOSPHAMIDE. [Suspect]
     Active Substance: CYCLOPHOSPHAMIDE
     Dates: end: 20150525
  4. DAUNORUBICIN [Suspect]
     Active Substance: DAUNORUBICIN
     Dates: end: 20150518
  5. DEXAMETHASONE. [Suspect]
     Active Substance: DEXAMETHASONE
     Dates: end: 20150517
  6. ETOPOSIDE (VP?16) [Suspect]
     Active Substance: ETOPOSIDE
     Dates: end: 20150703
  7. METHOTREXATE. [Suspect]
     Active Substance: METHOTREXATE
     Dates: end: 20160711
  8. MERCAPTOPURINE. [Suspect]
     Active Substance: MERCAPTOPURINE
     Dates: end: 20160714
  9. PREDNISONE. [Suspect]
     Active Substance: PREDNISONE
     Dates: end: 20160507
  10. VINCRISTINE SULFATE. [Suspect]
     Active Substance: VINCRISTINE SULFATE
     Dates: end: 20160502

REACTIONS (11)
  - Disease recurrence [None]
  - Abdominal pain upper [None]
  - Vomiting [None]
  - Insomnia [None]
  - Pyrexia [None]
  - Hyperbilirubinaemia [None]
  - Splenomegaly [None]
  - Nausea [None]
  - Depression [None]
  - Pneumonitis [None]
  - Atelectasis [None]

NARRATIVE: CASE EVENT DATE: 20160715
